FAERS Safety Report 23191436 (Version 3)
Quarter: 2023Q4

REPORT INFORMATION
  Report Type: Report from Study
  Country: BR (occurrence: BR)
  Receive Date: 20231116
  Receipt Date: 20231130
  Transmission Date: 20240109
  Serious: Yes (Disabling, Other)
  Sender: FDA-Public Use
  Company Number: BR-MYLANLABS-2023M1110731

PATIENT
  Sex: Female
  Weight: 47 kg

DRUGS (4)
  1. VENLAFAXINE HYDROCHLORIDE [Suspect]
     Active Substance: VENLAFAXINE HYDROCHLORIDE
     Indication: Obsessive-compulsive disorder
     Dosage: 150 MILLIGRAM, QD
     Route: 048
     Dates: start: 1999
  2. VENLAFAXINE HYDROCHLORIDE [Suspect]
     Active Substance: VENLAFAXINE HYDROCHLORIDE
     Indication: Depression
  3. DIACEREIN [Concomitant]
     Active Substance: DIACEREIN
     Indication: Osteoarthritis
     Dosage: UNK
     Route: 065
  4. ARTOGLICO [Concomitant]
     Indication: Osteoarthritis
     Dosage: UNK
     Route: 065

REACTIONS (17)
  - Suicidal ideation [Unknown]
  - Obsessive-compulsive disorder [Unknown]
  - Feeling abnormal [Not Recovered/Not Resolved]
  - Panic attack [Unknown]
  - Obsessive thoughts [Not Recovered/Not Resolved]
  - Crying [Unknown]
  - Fall [Not Recovered/Not Resolved]
  - Intentional self-injury [Unknown]
  - Product dose omission issue [Not Recovered/Not Resolved]
  - Glaucoma [Not Recovered/Not Resolved]
  - Cataract [Not Recovered/Not Resolved]
  - Diabetes mellitus [Not Recovered/Not Resolved]
  - Renal disorder [Not Recovered/Not Resolved]
  - Decreased appetite [Not Recovered/Not Resolved]
  - COVID-19 [Unknown]
  - Skin discolouration [Unknown]
  - Weight decreased [Not Recovered/Not Resolved]

NARRATIVE: CASE EVENT DATE: 20080101
